FAERS Safety Report 14497222 (Version 2)
Quarter: 2018Q1

REPORT INFORMATION
  Report Type: Report from Study
  Country: None (occurrence: US)
  Receive Date: 20180207
  Receipt Date: 20180306
  Transmission Date: 20180509
  Serious: Yes (Hospitalization, Other)
  Sender: FDA-Public Use
  Company Number: US-ABBVIE-18K-163-2246040-00

PATIENT
  Age: 89 Year
  Sex: Female
  Weight: 59.02 kg

DRUGS (5)
  1. METOPROLOL. [Concomitant]
     Active Substance: METOPROLOL
     Indication: PRODUCT USED FOR UNKNOWN INDICATION
  2. NORCO [Concomitant]
     Active Substance: ACETAMINOPHEN\HYDROCODONE BITARTRATE
     Indication: PRODUCT USED FOR UNKNOWN INDICATION
  3. AMIODARONE [Concomitant]
     Active Substance: AMIODARONE
     Indication: PRODUCT USED FOR UNKNOWN INDICATION
  4. HUMIRA [Suspect]
     Active Substance: ADALIMUMAB
     Indication: RHEUMATOID ARTHRITIS
     Route: 058
     Dates: end: 201801
  5. LEVOTHYROXINE. [Concomitant]
     Active Substance: LEVOTHYROXINE
     Indication: PRODUCT USED FOR UNKNOWN INDICATION

REACTIONS (10)
  - Eructation [Recovered/Resolved]
  - Rheumatoid arthritis [Not Recovered/Not Resolved]
  - Influenza [Recovered/Resolved]
  - Decreased appetite [Recovered/Resolved]
  - Weight decreased [Recovered/Resolved]
  - Pain [Not Recovered/Not Resolved]
  - Macular degeneration [Not Recovered/Not Resolved]
  - Retching [Recovered/Resolved]
  - Pneumonia [Recovered/Resolved]
  - Throat clearing [Not Recovered/Not Resolved]

NARRATIVE: CASE EVENT DATE: 20180129
